FAERS Safety Report 10195477 (Version 1)
Quarter: 2014Q2

REPORT INFORMATION
  Report Type: Spontaneous
  Country: US (occurrence: US)
  Receive Date: 20140526
  Receipt Date: 20140526
  Transmission Date: 20141212
  Serious: Yes (Other)
  Sender: FDA-Public Use
  Company Number: US-BAYER-2014-073977

PATIENT
  Age: 53 Year
  Sex: Male
  Weight: 73 kg

DRUGS (2)
  1. ALEVE CAPLET [Suspect]
     Indication: PAIN IN EXTREMITY
     Dosage: 1 DF, BID
     Route: 048
     Dates: start: 200601, end: 200608
  2. ALEVE CAPLET [Suspect]
     Indication: PAIN IN EXTREMITY
     Dosage: 1 DF, PRN
     Route: 048
     Dates: start: 200608

REACTIONS (2)
  - Incorrect drug administration duration [None]
  - Drug dependence [Recovered/Resolved]
